FAERS Safety Report 6218571-1 (Version None)
Quarter: 2009Q2

REPORT INFORMATION
  Report Type: 
  Country: None (occurrence: None)
  Receive Date: 20090608
  Receipt Date: 20090608
  Transmission Date: 20091009
  Serious: Yes (Other)
  Sender: FDA-Public Use
  Company Number: US-PFIZER INC-2009193184

PATIENT
  Sex: Female
  Weight: 54.422 kg

DRUGS (5)
  1. LYRICA [Suspect]
     Indication: NEUROPATHY PERIPHERAL
     Dosage: 75 MG, 2X/DAY
     Dates: start: 20090301
  2. BACLOFEN [Concomitant]
     Dosage: UNK
  3. DRUG, UNSPECIFIED [Concomitant]
     Dosage: 50 MG, UNK
  4. COLACE [Concomitant]
     Indication: GASTROINTESTINAL DISORDER
     Dosage: UNK
  5. PSYLLIUM HYDROPHILIC MUCILLOID [Concomitant]
     Dosage: UNK

REACTIONS (1)
  - CONVULSION [None]
